FAERS Safety Report 20808391 (Version 1)
Quarter: 2022Q2

REPORT INFORMATION
  Report Type: Spontaneous
  Country: US (occurrence: US)
  Receive Date: 20220510
  Receipt Date: 20220510
  Transmission Date: 20220720
  Serious: Yes (Hospitalization, Other)
  Sender: FDA-Public Use
  Company Number: US-PTx-2021000057

PATIENT
  Age: 64 Year
  Sex: Male

DRUGS (4)
  1. LEUKINE [Suspect]
     Active Substance: SARGRAMOSTIM
     Indication: Respiratory tract infection
     Dosage: 1300 MCG DAILY
     Route: 065
     Dates: start: 200504
  2. LEUKINE [Suspect]
     Active Substance: SARGRAMOSTIM
     Indication: Respiratory tract infection
     Dosage: 250 MCG DAILY
     Route: 045
     Dates: start: 200605
  3. LEUKINE [Suspect]
     Active Substance: SARGRAMOSTIM
     Indication: Respiratory tract infection
     Dosage: 500 MCG DAILY
     Route: 045
     Dates: start: 201701
  4. PREDNISONE [Concomitant]
     Active Substance: PREDNISONE
     Indication: Product used for unknown indication
     Dosage: UNKNOWN
     Route: 065

REACTIONS (4)
  - Chills [Recovered/Resolved]
  - Headache [Recovered/Resolved]
  - Hypertension [Recovered/Resolved]
  - Glomerulonephritis membranous [Recovered/Resolved]

NARRATIVE: CASE EVENT DATE: 20050701
